FAERS Safety Report 5332685-X (Version None)
Quarter: 2007Q2

REPORT INFORMATION
  Report Type: 
  Country: None (occurrence: None)
  Receive Date: 20070523
  Receipt Date: 20070517
  Transmission Date: 20071010
  Serious: Yes (Other)
  Sender: FDA-Public Use
  Company Number: BR-PFIZER INC-2007008701

PATIENT
  Sex: Female

DRUGS (4)
  1. DOSTINEX [Suspect]
     Indication: HYPERPROLACTINAEMIA
     Route: 048
  2. BROMOCRIPTINE MESYLATE [Suspect]
     Indication: HYPERPROLACTINAEMIA
     Dates: start: 20040101, end: 20040101
  3. ALL OTHER THERAPEUTIC PRODUCTS [Concomitant]
  4. ORAL CONTRACEPTIVE NOS [Concomitant]
     Route: 048

REACTIONS (9)
  - BLOOD PROLACTIN INCREASED [None]
  - DIZZINESS [None]
  - HEADACHE [None]
  - NAUSEA [None]
  - OSTEOPOROSIS [None]
  - POLYCYSTIC OVARIES [None]
  - SYNCOPE [None]
  - VISUAL DISTURBANCE [None]
  - WEIGHT DECREASED [None]
